FAERS Safety Report 13780173 (Version 1)
Quarter: 2017Q3

REPORT INFORMATION
  Report Type: Spontaneous
  Country: US (occurrence: US)
  Receive Date: 20170724
  Receipt Date: 20170724
  Transmission Date: 20171127
  Serious: No
  Sender: FDA-Public Use
  Company Number: ALCN2017US004588

PATIENT
  Sex: Male

DRUGS (1)
  1. ICAPS LZ [Suspect]
     Active Substance: VITAMINS
     Indication: PROSTATIC DISORDER
     Route: 047

REACTIONS (2)
  - Pollakiuria [Unknown]
  - Flatulence [Unknown]
